FAERS Safety Report 5201548-2 (Version None)
Quarter: 2006Q4

REPORT INFORMATION
  Report Type: 
  Country: None (occurrence: None)
  Receive Date: 20061005
  Receipt Date: 20060706
  Transmission Date: 20070319
  Serious: Yes (Hospitalization)
  Sender: FDA-Public Use
  Company Number: 29495

PATIENT
  Age: 15 Year
  Sex: Male

DRUGS (3)
  1. MAXAIR [Suspect]
     Indication: ASTHMA EXERCISE INDUCED
     Dosage: 200 MCG, AS NECESSARY, INHALATION
     Route: 055
     Dates: start: 20030101, end: 20060101
  2. ADVAIR (AEROSOL FOR INHALATION) [Suspect]
     Indication: ASTHMA EXERCISE INDUCED
     Dosage: (2 IN 1 DAY (S) ), INHALATION
     Route: 055
  3. ALBUTEROL [Suspect]

REACTIONS (1)
  - THERAPEUTIC RESPONSE DECREASED [None]
